FAERS Safety Report 12636711 (Version 1)
Quarter: 2016Q3

REPORT INFORMATION
  Report Type: Report from Study
  Country: US (occurrence: US)
  Receive Date: 20160809
  Receipt Date: 20160809
  Transmission Date: 20161109
  Serious: Yes (Other)
  Sender: FDA-Public Use
  Company Number: US-AMGEN-USASL2016099803

PATIENT
  Age: 60 Year
  Sex: Female

DRUGS (2)
  1. TRAMADOL. [Concomitant]
     Active Substance: TRAMADOL
     Dosage: UNK
  2. ENBREL [Suspect]
     Active Substance: ETANERCEPT
     Indication: PSORIATIC ARTHROPATHY
     Dosage: 50 MG, QWK
     Route: 065

REACTIONS (5)
  - Procedural haemorrhage [Not Recovered/Not Resolved]
  - Blood disorder [Not Recovered/Not Resolved]
  - Dental necrosis [Not Recovered/Not Resolved]
  - Tooth infection [Not Recovered/Not Resolved]
  - Tooth disorder [Not Recovered/Not Resolved]

NARRATIVE: CASE EVENT DATE: 20160729
